FAERS Safety Report 4562203-5 (Version None)
Quarter: 2005Q1

REPORT INFORMATION
  Report Type: 
  Country: None (occurrence: None)
  Receive Date: 20050124
  Receipt Date: 20050110
  Transmission Date: 20050727
  Serious: Yes (Hospitalization)
  Sender: FDA-Public Use
  Company Number: PHEH2005US00739

PATIENT
  Age: 80 Year
  Sex: Female
  Weight: 56.6996 kg

DRUGS (6)
  1. VISUDYNE [Suspect]
     Dosage: 10.2 MG DAILY IV
     Route: 042
     Dates: start: 20050107, end: 20050107
  2. LIPRAM [Concomitant]
  3. PREDNISONE [Concomitant]
  4. FLUCOTROL XL [Concomitant]
  5. HYDROCODONE [Concomitant]
  6. ALTACE [Concomitant]

REACTIONS (6)
  - ABDOMINAL PAIN UPPER [None]
  - ANXIETY [None]
  - DYSPNOEA [None]
  - FLUSHING [None]
  - HEART RATE INCREASED [None]
  - NAUSEA [None]
